FAERS Safety Report 6048020-8 (Version None)
Quarter: 2009Q1

REPORT INFORMATION
  Report Type: 
  Country: None (occurrence: None)
  Receive Date: 20090123
  Receipt Date: 20090115
  Transmission Date: 20090719
  Serious: Yes (Hospitalization)
  Sender: FDA-Public Use
  Company Number: FR-AVENTIS-200910182FR

PATIENT
  Age: 65 Year
  Sex: Male

DRUGS (4)
  1. FLAGYL [Suspect]
     Dates: start: 20080723
  2. CLAVENTIN                          /00973701/ [Suspect]
     Dates: start: 20080725
  3. VANCOMYCIN HCL [Suspect]
     Route: 042
     Dates: start: 20080725
  4. GENTAMICIN [Suspect]
     Dates: start: 20080723

REACTIONS (1)
  - CYTOLYTIC HEPATITIS [None]
